FAERS Safety Report 6724308-X (Version None)
Quarter: 2010Q2

REPORT INFORMATION
  Report Type: 
  Country: None (occurrence: None)
  Receive Date: 20100513
  Receipt Date: 20100503
  Transmission Date: 20101027
  Serious: Yes (Hospitalization)
  Sender: FDA-Public Use
  Company Number: US-JNJFOC-20100210380

PATIENT
  Age: 56 Year
  Sex: Female

DRUGS (3)
  1. TYLENOL-500 [Suspect]
     Route: 048
  2. TYLENOL-500 [Suspect]
     Indication: PAIN
     Route: 048
  3. OXYCONTIN [Concomitant]

REACTIONS (2)
  - ACCIDENTAL OVERDOSE [None]
  - TRANSAMINASES INCREASED [None]
